FAERS Safety Report 6385738-1 (Version None)
Quarter: 2009Q4

REPORT INFORMATION
  Report Type: 
  Country: None (occurrence: None)
  Receive Date: 20091002
  Receipt Date: 20080929
  Transmission Date: 20100525
  Serious: No
  Sender: FDA-Public Use
  Company Number: US-ASTRAZENECA-2008UW21011

PATIENT
  Age: 76 Year
  Sex: Female
  Weight: 46.3 kg

DRUGS (6)
  1. ARIMIDEX [Suspect]
     Indication: BREAST CANCER
     Route: 048
  2. NEURONTIN [Concomitant]
  3. PREVACID [Concomitant]
  4. VOLTAREN [Concomitant]
  5. ROBAXIN [Concomitant]
  6. LOTENSIN [Concomitant]

REACTIONS (5)
  - ASTHENIA [None]
  - HYPOAESTHESIA [None]
  - PAIN [None]
  - PARAESTHESIA [None]
  - PERIPHERAL COLDNESS [None]
